FAERS Safety Report 15628739 (Version 1)
Quarter: 2018Q4

REPORT INFORMATION
  Report Type: Spontaneous
  Country: IT (occurrence: IT)
  Receive Date: 20181116
  Receipt Date: 20181116
  Transmission Date: 20190205
  Serious: Yes (Life-Threatening)
  Sender: FDA-Public Use
  Company Number: IT-ROCHE-2215958

PATIENT
  Age: 66 Year
  Sex: Female

DRUGS (1)
  1. AVASTIN [Suspect]
     Active Substance: BEVACIZUMAB
     Indication: OVARIAN CANCER
     Dosage: 25 MG/ML?LAST DOSE 13/APR/2018
     Route: 040
     Dates: start: 20161020

REACTIONS (4)
  - Acute myocardial infarction [Recovering/Resolving]
  - Coronary angioplasty [Recovering/Resolving]
  - Coronary artery disease [Recovering/Resolving]
  - Vascular stent insertion [Recovering/Resolving]

NARRATIVE: CASE EVENT DATE: 20180503
